FAERS Safety Report 19379817 (Version 2)
Quarter: 2023Q1

REPORT INFORMATION
  Report Type: Other
  Country: US (occurrence: None)
  Receive Date: 20210607
  Receipt Date: 20230324
  Transmission Date: 20230417
  Serious: Yes (Hospitalization, Other)
  Sender: FDA-Public Use
  Company Number: US-ROCHE-2839833

PATIENT
  Age: 50 Year
  Sex: Female

DRUGS (15)
  1. OCREVUS [Suspect]
     Active Substance: OCRELIZUMAB
     Indication: Relapsing-remitting multiple sclerosis
     Dosage: DATE OF TREATMENT: 14/OCT/2019, 06/NOV/2019, 25/JUN/2020, 28/DEC/2020?30 MG/ML
     Route: 042
  2. ASPIRIN [Concomitant]
     Active Substance: ASPIRIN
     Route: 048
  3. ATORVASTATIN [Concomitant]
     Active Substance: ATORVASTATIN
     Route: 048
  4. AZITHROMYCIN [Concomitant]
     Active Substance: AZITHROMYCIN
     Dosage: FOR 5 DAYS
     Route: 048
  5. BACLOFEN [Concomitant]
     Active Substance: BACLOFEN
     Route: 048
  6. BENZONATATE [Concomitant]
     Active Substance: BENZONATATE
     Dosage: AS NEEDED
     Route: 048
  7. DALFAMPRIDINE [Concomitant]
     Active Substance: DALFAMPRIDINE
     Route: 048
  8. ENALAPRIL MALEATE [Concomitant]
     Active Substance: ENALAPRIL MALEATE
     Route: 048
  9. FARXIGA [Concomitant]
     Active Substance: DAPAGLIFLOZIN PROPANEDIOL
     Route: 048
  10. GLIPIZIDE ER [Concomitant]
     Active Substance: GLIPIZIDE
     Route: 048
  11. LORAZEPAM [Concomitant]
     Active Substance: LORAZEPAM
     Dosage: NIGHTLY
  12. METFORMIN HYDROCHLORIDE [Concomitant]
     Active Substance: METFORMIN HYDROCHLORIDE
     Route: 048
  13. METOPROLOL TARTRATE [Concomitant]
     Active Substance: METOPROLOL TARTRATE
     Route: 048
  14. SOLU-MEDROL [Concomitant]
     Active Substance: METHYLPREDNISOLONE SODIUM SUCCINATE
     Route: 042
  15. PREDNISONE [Concomitant]
     Active Substance: PREDNISONE
     Route: 048

REACTIONS (8)
  - Retinal artery occlusion [Unknown]
  - COVID-19 [Unknown]
  - Insomnia [Unknown]
  - Anxiety [Unknown]
  - Muscular weakness [Unknown]
  - Fatigue [Not Recovered/Not Resolved]
  - Somnolence [Unknown]
  - Multiple sclerosis pseudo relapse [Unknown]

NARRATIVE: CASE EVENT DATE: 20200914
